FAERS Safety Report 17566476 (Version 2)
Quarter: 2020Q3

REPORT INFORMATION
  Report Type: Spontaneous
  Country: US (occurrence: US)
  Receive Date: 20200320
  Receipt Date: 20200716
  Transmission Date: 20201102
  Serious: Yes (Other)
  Sender: FDA-Public Use
  Company Number: US-JNJFOC-20200317625

PATIENT
  Sex: Female
  Weight: 81.72 kg

DRUGS (1)
  1. REMICADE [Suspect]
     Active Substance: INFLIXIMAB
     Indication: CROHN^S DISEASE
     Route: 042

REACTIONS (8)
  - Adverse event [Not Recovered/Not Resolved]
  - Anaphylactic reaction [Recovered/Resolved]
  - Rectal haemorrhage [Recovering/Resolving]
  - Fistula [Not Recovered/Not Resolved]
  - Infusion related reaction [Recovered/Resolved]
  - Arthralgia [Not Recovered/Not Resolved]
  - Diarrhoea [Recovering/Resolving]
  - Abdominal pain [Recovering/Resolving]
